FAERS Safety Report 8365410-9 (Version None)
Quarter: 2012Q2

REPORT INFORMATION
  Report Type: 
  Country: None (occurrence: None)
  Receive Date: 20120516
  Receipt Date: 20120514
  Transmission Date: 20120825
  Serious: Yes (Life-Threatening, Hospitalization)
  Sender: FDA-Public Use
  Company Number: JP-B.I. PHARMACEUTICALS,INC./RIDGEFIELD-2011-DE-00746GD

PATIENT
  Sex: Male

DRUGS (4)
  1. MAGNESIUM OXIDE [Concomitant]
  2. MOBIC [Suspect]
     Indication: BACK PAIN
     Dosage: 10 MG
     Route: 048
     Dates: start: 20000101
  3. BUP-4 [Concomitant]
  4. PANTOSIN [Concomitant]

REACTIONS (4)
  - BLADDER CANCER [None]
  - INTESTINAL STENOSIS [None]
  - ANAEMIA [None]
  - HAEMATOCHEZIA [None]
